FAERS Safety Report 5106236-9 (Version None)
Quarter: 2006Q3

REPORT INFORMATION
  Report Type: 
  Country: None (occurrence: None)
  Receive Date: 20060918
  Receipt Date: 20060828
  Transmission Date: 20061208
  Serious: Yes (Hospitalization)
  Sender: FDA-Public Use
  Company Number: US-BRISTOL-MYERS SQUIBB COMPANY-13493879

PATIENT
  Age: 46 Year
  Sex: Female

DRUGS (6)
  1. ABILIFY [Suspect]
     Indication: DEPRESSION
     Route: 048
     Dates: start: 20031101
  2. SEROQUEL [Concomitant]
  3. EFFEXOR [Concomitant]
  4. PROVIGIL [Concomitant]
  5. TOPAMAX [Concomitant]
  6. TOPROL-XL [Concomitant]

REACTIONS (4)
  - CARDIOMYOPATHY [None]
  - DIARRHOEA [None]
  - RENAL FAILURE ACUTE [None]
  - STARVATION [None]
